FAERS Safety Report 9066416 (Version 1)
Quarter: 2013Q1

REPORT INFORMATION
  Report Type: Report from Study
  Country: US (occurrence: US)
  Receive Date: 20130131
  Receipt Date: 20130131
  Transmission Date: 20140127
  Serious: No
  Sender: FDA-Public Use
  Company Number: US-ABBOTT-12P-163-1007546-00

PATIENT
  Age: 30 Year
  Sex: Female

DRUGS (6)
  1. HUMIRA [Suspect]
     Indication: CROHN^S DISEASE
     Dates: start: 201206
  2. PENTASA [Concomitant]
     Indication: CROHN^S DISEASE
  3. MULTIPLE VITAMIN [Concomitant]
     Indication: PRODUCT USED FOR UNKNOWN INDICATION
  4. ORTHO TRI-CYCLEN LO [Concomitant]
     Indication: CONTRACEPTION
  5. LEXAPRO [Concomitant]
     Indication: DEPRESSION
     Dosage: DAILY
  6. LEXAPRO [Concomitant]
     Indication: ANXIETY

REACTIONS (1)
  - Injection site urticaria [Recovering/Resolving]
